FAERS Safety Report 19219510 (Version 1)
Quarter: 2021Q2

REPORT INFORMATION
  Report Type: Spontaneous
  Country: US (occurrence: US)
  Receive Date: 20210506
  Receipt Date: 20210506
  Transmission Date: 20210717
  Serious: No
  Sender: FDA-Public Use
  Company Number: US-ROCHE-2643183

PATIENT
  Sex: Female

DRUGS (13)
  1. CEPHALEXIN. [Concomitant]
     Active Substance: CEPHALEXIN
     Indication: CYSTITIS
     Dosage: ANTIBIOTIC FOR BLADDER INFECTION?ONGOING: YES
     Route: 065
  2. SIMVASTATIN. [Concomitant]
     Active Substance: SIMVASTATIN
     Indication: BLOOD CHOLESTEROL
     Route: 065
  3. LYRICA [Concomitant]
     Active Substance: PREGABALIN
     Route: 065
  4. ALPRAZOLAM. [Concomitant]
     Active Substance: ALPRAZOLAM
     Indication: ANXIETY
  5. ESBRIET [Suspect]
     Active Substance: PIRFENIDONE
     Indication: IDIOPATHIC PULMONARY FIBROSIS
     Route: 048
  6. ALLOPURINOL. [Concomitant]
     Active Substance: ALLOPURINOL
     Dosage: ONGOING: YES
     Route: 065
  7. ALPRAZOLAM. [Concomitant]
     Active Substance: ALPRAZOLAM
     Indication: STRESS
     Dosage: ONGOING: YES; ONE BEFORE BED
     Route: 065
  8. ESCITALOPRAM [Concomitant]
     Active Substance: ESCITALOPRAM OXALATE
     Dosage: ONGOING: YES
     Route: 065
  9. ESBRIET [Suspect]
     Active Substance: PIRFENIDONE
     Indication: IDIOPATHIC PULMONARY FIBROSIS
     Dosage: ONGOING: YES; THREE CAPSULE 3 TIMES DAILY
     Route: 048
  10. MAGNESIUM CITRATE. [Concomitant]
     Active Substance: MAGNESIUM CITRATE
     Dosage: ONGOING: YES
     Route: 065
  11. MULTIVITAMIN FOR WOMEN [Concomitant]
     Active Substance: MINERALS\VITAMINS
     Dosage: ONGOING: YES
     Route: 065
  12. BIOTIN [Concomitant]
     Active Substance: BIOTIN
     Dosage: ONGOING: YES
     Route: 065
  13. VITAMIN B12 [Concomitant]
     Active Substance: CYANOCOBALAMIN
     Dosage: ONGOING: YES
     Route: 065

REACTIONS (8)
  - Weight decreased [Unknown]
  - Pain [Not Recovered/Not Resolved]
  - Cystitis [Unknown]
  - Anxiety [Unknown]
  - Abdominal distension [Not Recovered/Not Resolved]
  - Flatulence [Recovered/Resolved with Sequelae]
  - Illness [Recovered/Resolved with Sequelae]
  - Stress [Unknown]
